FAERS Safety Report 8359944-0 (Version None)
Quarter: 2012Q2

REPORT INFORMATION
  Report Type: 
  Country: None (occurrence: None)
  Receive Date: 20120515
  Receipt Date: 20120510
  Transmission Date: 20120825
  Serious: Yes (Other)
  Sender: FDA-Public Use
  Company Number: PHEH2012US009995

PATIENT
  Sex: Female

DRUGS (1)
  1. ZOMETA [Suspect]
     Indication: BREAST CANCER
     Route: 042

REACTIONS (7)
  - INJURY [None]
  - ANHEDONIA [None]
  - OSTEONECROSIS OF JAW [None]
  - DEFORMITY [None]
  - PAIN IN JAW [None]
  - ASTHENIA [None]
  - EMOTIONAL DISTRESS [None]
